FAERS Safety Report 4715138-9 (Version None)
Quarter: 2005Q3

REPORT INFORMATION
  Report Type: 
  Country: None (occurrence: None)
  Receive Date: 20050715
  Receipt Date: 20050713
  Transmission Date: 20060218
  Serious: Yes (Other)
  Sender: FDA-Public Use
  Company Number: US-GLAXOSMITHKLINE-A0566108A

PATIENT
  Sex: Female

DRUGS (8)
  1. COREG [Suspect]
     Indication: CARDIOMYOPATHY
     Route: 048
     Dates: start: 20050101
  2. DIOVAN [Concomitant]
  3. DIGOXIN [Concomitant]
  4. LEVOTHYROXINE [Concomitant]
  5. ALDACTONE [Concomitant]
  6. FUROSEMIDE [Concomitant]
  7. AMBIEN [Concomitant]
  8. NITROTAB [Concomitant]

REACTIONS (2)
  - ANAEMIA [None]
  - RETICULOCYTE COUNT INCREASED [None]
